FAERS Safety Report 9730358 (Version 1)
Quarter: 2013Q4

REPORT INFORMATION
  Report Type: Report from Study
  Country: CA (occurrence: CA)
  Receive Date: 20131202
  Receipt Date: 20131202
  Transmission Date: 20140711
  Serious: Yes (Hospitalization)
  Sender: FDA-Public Use
  Company Number: CA-JNJFOC-20131117099

PATIENT
  Age: 46 Year
  Sex: Female
  Weight: 104 kg

DRUGS (5)
  1. REMICADE [Suspect]
     Indication: CROHN^S DISEASE
     Route: 042
  2. IMURAN [Concomitant]
     Route: 065
  3. PREDNISONE [Concomitant]
     Route: 065
  4. FLAGYL [Concomitant]
     Route: 065
  5. CIPRO [Concomitant]
     Route: 065

REACTIONS (2)
  - Dehydration [Recovering/Resolving]
  - Vomiting [Recovering/Resolving]
